FAERS Safety Report 9510575 (Version 2)
Quarter: 2013Q3

REPORT INFORMATION
  Report Type: Spontaneous
  Country: PE (occurrence: PE)
  Receive Date: 20130909
  Receipt Date: 20130918
  Transmission Date: 20140515
  Serious: No
  Sender: FDA-Public Use
  Company Number: PE-PFIZER INC-2013254606

PATIENT
  Age: 61 Year
  Sex: Female

DRUGS (1)
  1. XALATAN [Suspect]
     Indication: GLAUCOMA
     Dosage: 1 GTT/ 1X/DAY
     Route: 047

REACTIONS (2)
  - Eye injury [Recovered/Resolved]
  - Fall [Recovered/Resolved]
